FAERS Safety Report 8184996-0 (Version None)
Quarter: 2012Q1

REPORT INFORMATION
  Report Type: 
  Country: None (occurrence: None)
  Receive Date: 20120305
  Receipt Date: 20120227
  Transmission Date: 20120608
  Serious: Yes (Congenital Anomaly, Other)
  Sender: FDA-Public Use
  Company Number: US-TEVA-325026USA

PATIENT
  Sex: Female

DRUGS (3)
  1. VALPROIC ACID [Suspect]
     Dosage: 1000MG AT LAST MENSTRUAL PERIOD
     Route: 065
  2. CARBAMAZEPINE [Suspect]
     Dosage: 800MG AT 3 WEEKS
     Route: 065
  3. CARBAMAZEPINE [Suspect]
     Dosage: 400MG AT LAST MENSTRUAL PERIOD
     Route: 065

REACTIONS (1)
  - HYPOPLASTIC LEFT HEART SYNDROME [None]
